FAERS Safety Report 10404642 (Version 1)
Quarter: 2014Q2

REPORT INFORMATION
  Report Type: Spontaneous
  Country: US (occurrence: None)
  Receive Date: 20140530
  Receipt Date: 20140530
  Transmission Date: 20141212
  Serious: Yes (Other)
  Sender: FDA-Public Use
  Company Number: 406533USA

PATIENT
  Sex: Female

DRUGS (1)
  1. FENOFIBRATE [Suspect]

REACTIONS (8)
  - Myocardial infarction [None]
  - Abdominal pain [None]
  - Hyperhidrosis [None]
  - Fatigue [None]
  - Influenza like illness [None]
  - Chest pain [None]
  - Feeling abnormal [None]
  - Swelling [None]
